FAERS Safety Report 22398703 (Version 1)
Quarter: 2023Q2

REPORT INFORMATION
  Report Type: Spontaneous
  Country: GB (occurrence: GB)
  Receive Date: 20230602
  Receipt Date: 20230602
  Transmission Date: 20230722
  Serious: Yes (Hospitalization, Other)
  Sender: FDA-Public Use
  Company Number: GB-JNJFOC-20230569100

PATIENT
  Age: 47 Year
  Sex: Male

DRUGS (16)
  1. REMICADE [Suspect]
     Active Substance: INFLIXIMAB
     Indication: Crohn^s disease
     Route: 041
  2. REMICADE [Suspect]
     Active Substance: INFLIXIMAB
     Route: 041
     Dates: end: 202108
  3. ASPIRIN [Concomitant]
     Active Substance: ASPIRIN
  4. ALLOPURINOL [Concomitant]
     Active Substance: ALLOPURINOL
  5. FENOFIBRATE [Concomitant]
     Active Substance: FENOFIBRATE
  6. APIXABANUM [Concomitant]
     Dosage: AS PER PRESCRIPTION
  7. MIRTAZAPINE [Concomitant]
     Active Substance: MIRTAZAPINE
     Dosage: NIGHT
  8. VENLAFAXINE HYDROCHLORIDE [Concomitant]
     Active Substance: VENLAFAXINE HYDROCHLORIDE
  9. PANTOPRAZOLE [Concomitant]
     Active Substance: PANTOPRAZOLE
  10. IMODIUM [Concomitant]
     Active Substance: LOPERAMIDE HYDROCHLORIDE
  11. PEPPERMINT OIL [Concomitant]
     Active Substance: PEPPERMINT OIL
  12. FLUDROCORTISONE [Concomitant]
     Active Substance: FLUDROCORTISONE
  13. VITAMIN B [Concomitant]
     Active Substance: VITAMIN B
  14. TOUJEO [Concomitant]
     Active Substance: INSULIN GLARGINE
     Dosage: 86 UNITS AT NIGHT
  15. NOVORAPID [Concomitant]
     Active Substance: INSULIN ASPART
  16. GLUCOPHAGE [Concomitant]
     Active Substance: METFORMIN HYDROCHLORIDE

REACTIONS (4)
  - Diabetic coma [Unknown]
  - Pneumonia bacterial [Unknown]
  - Sepsis [Unknown]
  - COVID-19 [Unknown]
